FAERS Safety Report 23505154 (Version 1)
Quarter: 2024Q1

REPORT INFORMATION
  Report Type: Spontaneous
  Country: FR (occurrence: FR)
  Receive Date: 20240209
  Receipt Date: 20240209
  Transmission Date: 20240410
  Serious: Yes (Hospitalization)
  Sender: FDA-Public Use
  Company Number: FR-SANDOZ-SDZ2024FR011998

PATIENT
  Age: 37 Year
  Sex: Female

DRUGS (13)
  1. HEROIN [Suspect]
     Active Substance: DIAMORPHINE
     Dosage: UNK
     Route: 042
     Dates: start: 2020
  2. HEROIN [Suspect]
     Active Substance: DIAMORPHINE
     Indication: Product used for unknown indication
     Dosage: UNK
     Route: 045
     Dates: start: 2020
  3. KETAMINE [Suspect]
     Active Substance: KETAMINE
     Indication: Product used for unknown indication
     Dosage: 2 DF, DOSAGE AND FREQUENCY NR
     Route: 065
     Dates: start: 20231127
  4. BROMAZEPAM [Suspect]
     Active Substance: BROMAZEPAM
     Indication: Product used for unknown indication
     Dosage: 6MG MORNING AND EVENING AND IMV ON THE WAY DOWN FROM COCAINE
     Route: 048
     Dates: start: 2019
  5. LYRICA [Suspect]
     Active Substance: PREGABALIN
     Dosage: 150 MG, QD;  DOSE REDUCED TO 300MG MORNING AND 150MG
     Route: 048
  6. LYRICA [Suspect]
     Active Substance: PREGABALIN
     Dosage: 300 MG, MORNING AND EVENING
     Route: 048
     Dates: start: 2019
  7. LYRICA [Suspect]
     Active Substance: PREGABALIN
     Indication: Sedative therapy
     Dosage: 4.2 MG
     Route: 048
     Dates: start: 20231128, end: 20231128
  8. METHADONE HYDROCHLORIDE [Suspect]
     Active Substance: METHADONE HYDROCHLORIDE
     Indication: Product used for unknown indication
     Dosage: UNK
     Route: 065
     Dates: start: 20231128, end: 20231128
  9. TRAMADOL [Suspect]
     Active Substance: TRAMADOL\TRAMADOL HYDROCHLORIDE
     Indication: Product used for unknown indication
     Dosage: UNK
     Route: 065
     Dates: start: 2010
  10. ZOLPIDEM [Suspect]
     Active Substance: ZOLPIDEM TARTRATE
     Indication: Product used for unknown indication
     Dosage: UNKAND IMV IN COCAINE RESDECENTE, AT BEDTIME
     Route: 065
     Dates: start: 2019
  11. ZOLPIDEM [Suspect]
     Active Substance: ZOLPIDEM TARTRATE
     Dosage: ONGOING -EVENING
     Route: 048
     Dates: start: 2019
  12. COCAINE [Concomitant]
     Active Substance: COCAINE
     Indication: Product used for unknown indication
     Dosage: 2 G, QD NASAL ROUTE IN FESTIVE CONTEXT
     Route: 042
     Dates: start: 2022
  13. COCAINE [Concomitant]
     Active Substance: COCAINE
     Dosage: 2 G, QD, SINCE 2019 REGULAR INTAKE SMOKED IN A CRACK PIPE CONSUMPTION 2 G/DR
     Route: 042
     Dates: start: 2019

REACTIONS (3)
  - Drug use disorder [Not Recovered/Not Resolved]
  - Pneumonia aspiration [Recovering/Resolving]
  - Coma [Recovered/Resolved]

NARRATIVE: CASE EVENT DATE: 20190101
